FAERS Safety Report 13498572 (Version 1)
Quarter: 2017Q2

REPORT INFORMATION
  Report Type: Spontaneous
  Country: JP (occurrence: JP)
  Receive Date: 20170501
  Receipt Date: 20170501
  Transmission Date: 20170830
  Serious: Yes (Life-Threatening, Other)
  Sender: FDA-Public Use
  Company Number: JP-ACCORD-051015

PATIENT
  Age: 46 Year
  Sex: Male

DRUGS (4)
  1. PEMETREXED. [Suspect]
     Active Substance: PEMETREXED
     Indication: LUNG ADENOCARCINOMA STAGE III
     Dosage: ADMINISTERED EVERY 3 WEEKS
  2. CELECOXIB. [Concomitant]
     Active Substance: CELECOXIB
     Indication: HYPERTROPHIC OSTEOARTHROPATHY
  3. MORPHINE [Concomitant]
     Active Substance: MORPHINE
     Indication: HYPERTROPHIC OSTEOARTHROPATHY
  4. CISPLATIN. [Suspect]
     Active Substance: CISPLATIN
     Indication: LUNG ADENOCARCINOMA STAGE III
     Dosage: ADMINISTERED EVERY 3 WEEKS

REACTIONS (1)
  - Drug ineffective [Unknown]
